FAERS Safety Report 18929610 (Version 2)
Quarter: 2021Q1

REPORT INFORMATION
  Report Type: Report from Study
  Country: US (occurrence: US)
  Receive Date: 20210223
  Receipt Date: 20210324
  Transmission Date: 20210420
  Serious: No
  Sender: FDA-Public Use
  Company Number: NVSC2021US035387

PATIENT
  Age: 73 Year
  Sex: Female

DRUGS (2)
  1. PROMACTA [Suspect]
     Active Substance: ELTROMBOPAG OLAMINE
     Indication: IMMUNE THROMBOCYTOPENIA
     Dosage: 50 MG, QD
     Route: 048
  2. PROMACTA [Suspect]
     Active Substance: ELTROMBOPAG OLAMINE
     Dosage: 50 MG (MONDAY AND THURSDAY OF EACH WEEK)
     Route: 048

REACTIONS (8)
  - Chest pain [Unknown]
  - Myalgia [Unknown]
  - Dyspnoea [Unknown]
  - Hiatus hernia [Unknown]
  - Asthenia [Unknown]
  - Lethargy [Unknown]
  - Platelet count increased [Recovered/Resolved]
  - Pulmonary pain [Unknown]

NARRATIVE: CASE EVENT DATE: 20210130
